FAERS Safety Report 14971706 (Version 1)
Quarter: 2018Q2

REPORT INFORMATION
  Report Type: Spontaneous
  Country: FR (occurrence: FR)
  Receive Date: 20180604
  Receipt Date: 20180604
  Transmission Date: 20180711
  Serious: Yes (Other)
  Sender: FDA-Public Use
  Company Number: FR-MERCK KGAA-2048978

PATIENT
  Age: 38 Year
  Sex: Male

DRUGS (6)
  1. NOVOTHYROX [Suspect]
     Active Substance: LEVOTHYROXINE SODIUM
     Indication: TOXICITY TO VARIOUS AGENTS
     Route: 048
     Dates: start: 20180428, end: 20180428
  2. ZOPICLONE [Suspect]
     Active Substance: ZOPICLONE
     Route: 048
     Dates: start: 20180428, end: 20180428
  3. VENLAFAXINE [Suspect]
     Active Substance: VENLAFAXINE HYDROCHLORIDE
     Route: 048
     Dates: start: 20180428, end: 20180428
  4. CANNABIS [Suspect]
     Active Substance: CANNABIS SATIVA SUBSP. INDICA TOP
  5. ALCOOL [Suspect]
     Active Substance: ALCOHOL
     Route: 048
     Dates: start: 20180428
  6. SERESTA [Suspect]
     Active Substance: OXAZEPAM
     Route: 048
     Dates: start: 20180428, end: 20180428

REACTIONS (4)
  - Toxicity to various agents [Recovered/Resolved]
  - Vomiting [Recovered/Resolved]
  - Drug abuse [Recovering/Resolving]
  - Somnolence [Recovered/Resolved]

NARRATIVE: CASE EVENT DATE: 20180428
